FAERS Safety Report 7235040 (Version 23)
Quarter: 2014Q2

REPORT INFORMATION
  Report Type: Spontaneous
  Country: US (occurrence: US)
  Receive Date: 20091231
  Receipt Date: 20140624
  Transmission Date: 20141212
  Serious: Yes (Other)
  Sender: FDA-Public Use
  Company Number: PHEH2009US18119

PATIENT
  Sex: Female

DRUGS (16)
  1. ZOMETA [Suspect]
     Indication: METASTASES TO BONE
     Dosage: UNK UKN, UNK
     Route: 042
     Dates: start: 200404, end: 200606
  2. ZOMETA [Suspect]
     Indication: METASTASES TO LIVER
  3. ZOMETA [Suspect]
     Indication: METASTASES TO SPINE
  4. ZETIA [Concomitant]
     Dosage: 10 MG, QD
  5. FUROSEMIDE [Concomitant]
     Dosage: 40 MG, QD
  6. LEVOTHYROXINE [Concomitant]
     Dosage: 175 UG, QD
  7. CYMBALTA [Concomitant]
     Dosage: 60 MG, QD
  8. LISINOPRIL [Concomitant]
     Dosage: 10 MG, QD
  9. PRAVASTATIN [Concomitant]
     Dosage: 40 MG, QD
  10. NIFEDIPINE [Concomitant]
     Dosage: 30 MG, QD
  11. ZOLPIDEM [Concomitant]
     Dosage: 10 MG, PRN
  12. SYNTHROID [Concomitant]
     Dosage: 150 UG, QD
  13. PERIDEX [Concomitant]
     Dosage: 15 ML, BID
  14. PREMPRO [Concomitant]
     Dosage: 1 DF, QD
  15. CLINDAMYCIN [Concomitant]
     Dosage: 300 MG, UNK
  16. LANSOPRAZOLE [Concomitant]
     Dosage: 30 MG, UNK

REACTIONS (116)
  - Osteonecrosis of jaw [Unknown]
  - Infection [Unknown]
  - Emotional distress [Unknown]
  - Pain [Unknown]
  - Anxiety [Unknown]
  - Physical disability [Unknown]
  - Deformity [Unknown]
  - Injury [Unknown]
  - Lymphadenopathy [Unknown]
  - Pain in jaw [Unknown]
  - Face oedema [Unknown]
  - Swelling [Unknown]
  - Exposed bone in jaw [Unknown]
  - Bone fragmentation [Unknown]
  - Osteomyelitis acute [Unknown]
  - Haemorrhage [Unknown]
  - Abscess [Unknown]
  - Dysphagia [Unknown]
  - Gastrooesophageal reflux disease [Unknown]
  - Arteriosclerosis [Unknown]
  - Intervertebral disc degeneration [Unknown]
  - Depression [Unknown]
  - Foot fracture [Unknown]
  - Cerebral small vessel ischaemic disease [Unknown]
  - Abscess neck [Unknown]
  - Chest pain [Unknown]
  - Fistula [Unknown]
  - Hypertension [Unknown]
  - Osteoporosis [Unknown]
  - Hyperthyroidism [Unknown]
  - Neuropathy peripheral [Unknown]
  - Periodontitis [Unknown]
  - Foot deformity [Unknown]
  - Compression fracture [Unknown]
  - Renal cyst [Unknown]
  - Cholelithiasis [Unknown]
  - Bone lesion [Unknown]
  - Primary sequestrum [Unknown]
  - Abdominal pain upper [Unknown]
  - Hepatic steatosis [Unknown]
  - Sinusitis [Unknown]
  - Adrenomegaly [Unknown]
  - Vitreous floaters [Unknown]
  - Dry eye [Unknown]
  - Arthritis [Unknown]
  - Dermatitis contact [Unknown]
  - Urticaria [Unknown]
  - Oral disorder [Unknown]
  - Joint swelling [Unknown]
  - Dyspnoea [Unknown]
  - Rash [Unknown]
  - Erythema [Unknown]
  - Insomnia [Unknown]
  - Back pain [Unknown]
  - Hypoaesthesia [Unknown]
  - Cholecystitis [Unknown]
  - Pneumonia [Unknown]
  - Rib fracture [Recovered/Resolved]
  - Contusion [Unknown]
  - Paraesthesia [Unknown]
  - Purulent discharge [Unknown]
  - Ulcer [Unknown]
  - Large intestine polyp [Unknown]
  - Amnesia [Unknown]
  - Confusional state [Unknown]
  - Diverticulum [Unknown]
  - Oesophageal spasm [Unknown]
  - Carpal tunnel syndrome [Unknown]
  - Abscess jaw [Unknown]
  - Fistula discharge [Unknown]
  - Facial pain [Unknown]
  - Musculoskeletal chest pain [Unknown]
  - Spinal osteoarthritis [Unknown]
  - Fall [Unknown]
  - Limb injury [Unknown]
  - Soft tissue inflammation [Unknown]
  - Osteosclerosis [Unknown]
  - Duodenitis [Unknown]
  - Gastritis [Unknown]
  - Faecal incontinence [Unknown]
  - Spondylolisthesis [Unknown]
  - Intervertebral disc protrusion [Unknown]
  - Breast calcifications [Unknown]
  - Arteriosclerosis coronary artery [Unknown]
  - Hypothyroidism [Unknown]
  - Essential hypertension [Unknown]
  - Cataract [Unknown]
  - Rib deformity [Unknown]
  - Intervertebral disc space narrowing [Unknown]
  - Exostosis [Unknown]
  - Anaemia [Unknown]
  - Osteoradionecrosis [Unknown]
  - Stress fracture [Unknown]
  - Fractured sacrum [Unknown]
  - Myalgia [Unknown]
  - Muscle spasms [Unknown]
  - Lung infiltration [Unknown]
  - Pulmonary fibrosis [Unknown]
  - Haemangioma of liver [Unknown]
  - Osteoarthritis [Unknown]
  - Thyroid disorder [Unknown]
  - Musculoskeletal pain [Unknown]
  - Adrenal adenoma [Unknown]
  - Nodule [Unknown]
  - Skeletal injury [Unknown]
  - Bone deformity [Unknown]
  - Uterine atrophy [Unknown]
  - Headache [Unknown]
  - White matter lesion [Unknown]
  - Head discomfort [Unknown]
  - Arthralgia [Unknown]
  - Fatigue [Unknown]
  - Asthenia [Unknown]
  - Dry mouth [Unknown]
  - Wheezing [Unknown]
  - Cough [Unknown]
